FAERS Safety Report 16366102 (Version 3)
Quarter: 2019Q3

REPORT INFORMATION
  Report Type: Spontaneous
  Country: JP (occurrence: JP)
  Receive Date: 20190529
  Receipt Date: 20190916
  Transmission Date: 20191004
  Serious: Yes (Death, Life-Threatening)
  Sender: FDA-Public Use
  Company Number: JP-JNJFOC-20190537076

PATIENT
  Age: 85 Year
  Sex: Male
  Weight: 61.4 kg

DRUGS (10)
  1. SODIUM RABEPRAZOLE [Concomitant]
     Active Substance: RABEPRAZOLE SODIUM
     Route: 048
     Dates: end: 20190520
  2. SIMVASTATIN. [Concomitant]
     Active Substance: SIMVASTATIN
     Route: 048
     Dates: end: 20190520
  3. ZYTIGA [Suspect]
     Active Substance: ABIRATERONE ACETATE
     Indication: HORMONE-REFRACTORY PROSTATE CANCER
     Dosage: STRENGTH: 250 MG
     Route: 048
     Dates: start: 20180717, end: 20190520
  4. PREDONINE [Concomitant]
     Active Substance: PREDNISOLONE
     Indication: PRODUCT USED FOR UNKNOWN INDICATION
     Route: 048
     Dates: end: 20190520
  5. ETHYL ICOSAPENTATE [Concomitant]
     Active Substance: ICOSAPENT ETHYL
     Route: 048
     Dates: end: 20190520
  6. AMLODIPINE [Concomitant]
     Active Substance: AMLODIPINE BESYLATE
     Dosage: AMLODIPINE BESILATE
     Route: 048
     Dates: end: 20190519
  7. AZILVA [Concomitant]
     Active Substance: AZILSARTAN KAMEDOXOMIL
     Dosage: AZILSARTAN
     Route: 048
     Dates: end: 20190519
  8. DENOTAS [Concomitant]
     Active Substance: CALCIUM CARBONATE\CHOLECALCIFEROL\MAGNESIUM CARBONATE
     Dosage: PRECIPITATED CALCIUM CARBONATE/CHOLECALCIFEROL/MAGNESIUM CARBONATE
     Route: 048
     Dates: end: 20190520
  9. EDIROL [Concomitant]
     Active Substance: ELDECALCITOL
     Dosage: ELDECALCITOL
     Route: 048
     Dates: end: 20190520
  10. RAVONAL [Concomitant]
     Active Substance: THIOPENTAL
     Route: 065
     Dates: end: 20190521

REACTIONS (4)
  - Sepsis [Fatal]
  - Inappropriate schedule of product administration [Unknown]
  - Off label use [Unknown]
  - Cardiac failure congestive [Not Recovered/Not Resolved]

NARRATIVE: CASE EVENT DATE: 20180717
